FAERS Safety Report 22075085 (Version 3)
Quarter: 2023Q2

REPORT INFORMATION
  Report Type: Spontaneous
  Country: US (occurrence: None)
  Receive Date: 20230308
  Receipt Date: 20230413
  Transmission Date: 20230721
  Serious: No
  Sender: FDA-Public Use
  Company Number: 2023A037702

PATIENT
  Age: 889 Month
  Sex: Female
  Weight: 118.8 kg

DRUGS (1)
  1. BYDUREON BCISE [Suspect]
     Active Substance: EXENATIDE
     Indication: Type 2 diabetes mellitus
     Route: 058
     Dates: start: 20230126

REACTIONS (5)
  - Visual impairment [Unknown]
  - Wrong technique in product usage process [Unknown]
  - Product solubility abnormal [Unknown]
  - Inability to afford medication [Unknown]
  - Device difficult to use [Unknown]

NARRATIVE: CASE EVENT DATE: 20230101
